FAERS Safety Report 5463972-2 (Version None)
Quarter: 2007Q3

REPORT INFORMATION
  Report Type: 
  Country: None (occurrence: None)
  Receive Date: 20070921
  Receipt Date: 20070914
  Transmission Date: 20080115
  Serious: Yes (Hospitalization)
  Sender: FDA-Public Use
  Company Number: PHBS2007CH15122

PATIENT
  Age: 57 Year
  Sex: Male

DRUGS (1)
  1. LIORESAL [Suspect]
     Dosage: 40 MG, QD
     Route: 048
     Dates: start: 20070628, end: 20070629

REACTIONS (2)
  - COMA [None]
  - GLASGOW COMA SCALE ABNORMAL [None]
